FAERS Safety Report 20173377 (Version 2)
Quarter: 2021Q4

REPORT INFORMATION
  Report Type: Spontaneous
  Country: US (occurrence: US)
  Receive Date: 20211211
  Receipt Date: 20211231
  Transmission Date: 20220303
  Serious: Yes (Hospitalization)
  Sender: FDA-Public Use
  Company Number: US-TEVA-2021-US-1985439

PATIENT
  Age: 90 Year
  Sex: Male

DRUGS (1)
  1. TOLTERODINE TARTRATE [Suspect]
     Active Substance: TOLTERODINE TARTRATE
     Indication: Urinary incontinence
     Route: 065
     Dates: start: 202108

REACTIONS (5)
  - Seizure [Recovered/Resolved with Sequelae]
  - Vertigo [Recovered/Resolved]
  - Coordination abnormal [Recovered/Resolved]
  - Pain [Recovered/Resolved with Sequelae]
  - Urinary incontinence [Unknown]

NARRATIVE: CASE EVENT DATE: 20210101
